FAERS Safety Report 10061328 (Version 1)
Quarter: 2014Q2

REPORT INFORMATION
  Report Type: Spontaneous
  Country: US (occurrence: US)
  Receive Date: 20140407
  Receipt Date: 20140407
  Transmission Date: 20141212
  Serious: Yes (Other)
  Sender: FDA-Public Use
  Company Number: US-ALEXION-A201401000

PATIENT
  Sex: 0

DRUGS (8)
  1. SOLIRIS 300MG [Suspect]
     Indication: HAEMOLYTIC URAEMIC SYNDROME
     Dosage: 900 MG, QW
     Route: 042
     Dates: start: 20140226
  2. CELLCEPT                           /01275102/ [Concomitant]
     Indication: RENAL TRANSPLANT
     Dosage: 750 MG, BID
     Route: 048
     Dates: end: 20140317
  3. CELLCEPT                           /01275102/ [Concomitant]
     Dosage: 250 MG, BID
     Route: 048
     Dates: start: 20140317, end: 20140319
  4. VALCYTE [Concomitant]
     Indication: RENAL TRANSPLANT
     Dosage: UNK, QOD
     Route: 048
  5. BACTRIM [Concomitant]
     Indication: RENAL TRANSPLANT
     Dosage: UNK, QD
     Route: 048
     Dates: end: 20140317
  6. BACTRIM [Concomitant]
     Dosage: UNK, QD
     Route: 048
     Dates: start: 20140317
  7. NEUPOGEN [Concomitant]
     Indication: LEUKOPENIA
     Dosage: UNK, SINGLE
     Route: 065
     Dates: start: 20140319
  8. CIPROFLOXACIN [Concomitant]
     Indication: PROPHYLAXIS
     Dosage: UNK
     Route: 048

REACTIONS (3)
  - Thrombocytopenia [Not Recovered/Not Resolved]
  - Leukopenia [Not Recovered/Not Resolved]
  - Anaemia [Not Recovered/Not Resolved]
